FAERS Safety Report 23977131 (Version 2)
Quarter: 2024Q2

REPORT INFORMATION
  Report Type: Report from Study
  Country: FR (occurrence: None)
  Receive Date: 20240614
  Receipt Date: 20240617
  Transmission Date: 20240715
  Serious: Yes (Death, Disabling)
  Sender: FDA-Public Use
  Company Number: 2024A137466

PATIENT
  Sex: Male
  Weight: 77 kg

DRUGS (3)
  1. IMFINZI [Suspect]
     Active Substance: DURVALUMAB
     Indication: HER2 positive biliary tract cancer
     Route: 042
     Dates: start: 20240124
  2. GEMCITABINE [Concomitant]
     Active Substance: GEMCITABINE
     Route: 042
     Dates: start: 20240124
  3. CISPLATIN [Concomitant]
     Active Substance: CISPLATIN
     Route: 042
     Dates: start: 20240124

REACTIONS (3)
  - Hypoacusis [Unknown]
  - General physical health deterioration [Unknown]
  - Death [Fatal]
